FAERS Safety Report 5238129-0 (Version None)
Quarter: 2007Q1

REPORT INFORMATION
  Report Type: 
  Country: None (occurrence: None)
  Receive Date: 20070215
  Receipt Date: 20070207
  Transmission Date: 20070707
  Serious: Yes (Life-Threatening, Hospitalization)
  Sender: FDA-Public Use
  Company Number: DE-BRISTOL-MYERS SQUIBB COMPANY-13656335

PATIENT
  Age: 39 Year
  Sex: Male
  Weight: 71 kg

DRUGS (5)
  1. REYATAZ [Suspect]
     Indication: HIV INFECTION
     Route: 048
     Dates: start: 20070114, end: 20070119
  2. ALCOHOL [Suspect]
  3. TRUVADA [Suspect]
     Indication: HIV INFECTION
     Route: 048
     Dates: start: 20070114, end: 20070119
  4. NORVIR [Concomitant]
     Indication: HIV INFECTION
     Route: 048
     Dates: start: 20070114, end: 20070119
  5. PREDNISOLONE [Concomitant]
     Indication: HIV INFECTION
     Dates: start: 20070114, end: 20070119

REACTIONS (2)
  - HEPATIC FAILURE [None]
  - HYPERBILIRUBINAEMIA [None]
